FAERS Safety Report 4757479-5 (Version None)
Quarter: 2005Q3

REPORT INFORMATION
  Report Type: 
  Country: None (occurrence: None)
  Receive Date: 20050831
  Receipt Date: 20010510
  Transmission Date: 20060218
  Serious: Yes (Disabling)
  Sender: FDA-Public Use
  Company Number: US-MERCK-01051153

PATIENT
  Age: 69 Year
  Sex: Female

DRUGS (1)
  1. ZOCOR [Suspect]
     Indication: HYPERCHOLESTEROLAEMIA
     Route: 048

REACTIONS (4)
  - BLOOD DISORDER [None]
  - ERYTHEMA [None]
  - FALL [None]
  - JOINT SWELLING [None]
